FAERS Safety Report 6222925-7 (Version None)
Quarter: 2009Q2

REPORT INFORMATION
  Report Type: 
  Country: None (occurrence: None)
  Receive Date: 20090609
  Receipt Date: 20090526
  Transmission Date: 20091009
  Serious: Yes (Other)
  Sender: FDA-Public Use
  Company Number: 230302K09BRA

PATIENT
  Age: 33 Year
  Sex: Female

DRUGS (6)
  1. REBIF [Suspect]
     Indication: RELAPSING-REMITTING MULTIPLE SCLEROSIS
     Dosage: 22 MCG, 3 IN 1 WEEKS
     Dates: start: 20080611
  2. SOMALIUM (BROMAZEPAM) (BROMAZEPAM) [Concomitant]
  3. FLUOXETINE [Concomitant]
  4. VERTIX [VERTEX] (MEBENDAZOLE) [Concomitant]
  5. OXICARBAZEPINE [OXCARBAZEPINE] (OXCARBAZEPINE) [Concomitant]
  6. OMEPRAZOLE [Concomitant]

REACTIONS (2)
  - INFLUENZA LIKE ILLNESS [None]
  - LABYRINTHITIS [None]
